FAERS Safety Report 12990524 (Version 1)
Quarter: 2016Q4

REPORT INFORMATION
  Report Type: Spontaneous
  Country: US (occurrence: US)
  Receive Date: 20161201
  Receipt Date: 20161201
  Transmission Date: 20170207
  Serious: No
  Sender: FDA-Public Use
  Company Number: US-PFIZER INC-2016551924

PATIENT
  Age: 61 Year
  Sex: Female

DRUGS (4)
  1. CENTRUM SILVER [Suspect]
     Active Substance: MINERALS\VITAMINS
     Dosage: UNK
  2. VITAMIN C [Suspect]
     Active Substance: ASCORBIC ACID
     Dosage: UNK
  3. ESTRADIOL. [Suspect]
     Active Substance: ESTRADIOL
     Dosage: UNK
  4. VIIBRYD [Suspect]
     Active Substance: VILAZODONE HYDROCHLORIDE
     Dosage: UNK

REACTIONS (1)
  - Drug hypersensitivity [Unknown]
